FAERS Safety Report 8282032-9 (Version None)
Quarter: 2012Q2

REPORT INFORMATION
  Report Type: 
  Country: None (occurrence: None)
  Receive Date: 20120413
  Receipt Date: 20120316
  Transmission Date: 20120825
  Serious: Yes (Hospitalization, Other)
  Sender: FDA-Public Use
  Company Number: US-ASTELLAS-2012US000078

PATIENT
  Sex: Male
  Weight: 61 kg

DRUGS (5)
  1. TARCEVA [Suspect]
     Dosage: 75 MG, UID/QD
     Route: 048
     Dates: start: 20111230
  2. TARCEVA [Suspect]
     Dosage: 150 MG, UID/QD
     Route: 048
     Dates: start: 20111127, end: 20111207
  3. TARCEVA [Suspect]
     Dosage: 150 MG, UID/QD
     Route: 048
     Dates: end: 20120314
  4. LASIX [Concomitant]
     Indication: PRODUCT USED FOR UNKNOWN INDICATION
     Dosage: UNK
     Route: 065
  5. TARCEVA [Suspect]
     Indication: NON-SMALL CELL LUNG CANCER
     Dosage: 150 MG, UID/QD
     Route: 048
     Dates: start: 20111118, end: 20111125

REACTIONS (13)
  - PULMONARY OEDEMA [None]
  - DIARRHOEA [None]
  - CARDIAC FAILURE CONGESTIVE [None]
  - DECUBITUS ULCER [None]
  - COUGH [None]
  - DIZZINESS [None]
  - OEDEMA PERIPHERAL [None]
  - DRY SKIN [None]
  - SKIN FISSURES [None]
  - COLITIS [None]
  - DECREASED APPETITE [None]
  - LOSS OF CONSCIOUSNESS [None]
  - GASTROENTERITIS VIRAL [None]
